FAERS Safety Report 15285217 (Version 2)
Quarter: 2018Q3

REPORT INFORMATION
  Report Type: Report from Study
  Country: CO (occurrence: CO)
  Receive Date: 20180816
  Receipt Date: 20180910
  Transmission Date: 20181010
  Serious: Yes (Hospitalization, Other)
  Sender: FDA-Public Use
  Company Number: CO-BAYER-2018-148146

PATIENT
  Age: 62 Year
  Sex: Male

DRUGS (5)
  1. LOSARTAN. [Concomitant]
     Active Substance: LOSARTAN
     Indication: HYPERTENSION
     Dosage: 100 MG, OM
  2. BETAFERON [Suspect]
     Active Substance: INTERFERON BETA-1B
     Indication: MULTIPLE SCLEROSIS
     Dosage: 1 DF, QOD
     Route: 058
     Dates: start: 20030701
  3. LOSARTAN. [Concomitant]
     Active Substance: LOSARTAN
     Indication: HYPERTENSION
     Dosage: 50 MG, HS
  4. BETAFERON [Suspect]
     Active Substance: INTERFERON BETA-1B
     Indication: MULTIPLE SCLEROSIS
     Dosage: 1 DF, Q72HR
     Route: 058
     Dates: start: 20030701
  5. SALICYLIC ACID. [Concomitant]
     Active Substance: SALICYLIC ACID
     Dosage: UNK

REACTIONS (9)
  - Inflammation [Unknown]
  - Tinnitus [Unknown]
  - Visual impairment [Unknown]
  - Hypoaesthesia [Unknown]
  - Prostatic operation [Unknown]
  - Head discomfort [Unknown]
  - Multiple sclerosis [None]
  - Hypoaesthesia [None]
  - Prostatitis [Unknown]

NARRATIVE: CASE EVENT DATE: 2018
